FAERS Safety Report 4701326-4 (Version None)
Quarter: 2005Q2

REPORT INFORMATION
  Report Type: 
  Country: None (occurrence: None)
  Receive Date: 20050627
  Receipt Date: 20050609
  Transmission Date: 20051028
  Serious: Yes (Death)
  Sender: FDA-Public Use
  Company Number: 2005079472

PATIENT
  Age: 28 Year
  Sex: Male

DRUGS (13)
  1. VIRACEPT [Suspect]
     Indication: HIV INFECTION
     Dosage: 1250 MG (1250 MG,2 IN 1 D),ORAL
     Route: 048
     Dates: end: 20040804
  2. CELEXA [Suspect]
     Indication: ILL-DEFINED DISORDER
     Dosage: 40 MG,ORAL
     Route: 048
  3. CELEXA [Suspect]
     Indication: ILL-DEFINED DISORDER
     Dates: end: 20040804
  4. COMBIVIR [Suspect]
     Indication: HIV INFECTION
     Dates: end: 20040804
  5. DEPAKOTE [Concomitant]
  6. LIPITOR [Concomitant]
  7. ATIVAN [Concomitant]
  8. ZYPREXA [Concomitant]
  9. NIZORAL (KETOCNOAZOLE) [Concomitant]
  10. BENADRYL [Concomitant]
  11. TYLENOL [Concomitant]
  12. MULTIVITAMIN [Concomitant]
  13. ZITHROMAX [Concomitant]

REACTIONS (17)
  - ACCIDENTAL OVERDOSE [None]
  - ATHEROSCLEROSIS [None]
  - BLOOD ALCOHOL INCREASED [None]
  - CORONARY ARTERY ATHEROSCLEROSIS [None]
  - CYANOSIS [None]
  - DEPRESSED LEVEL OF CONSCIOUSNESS [None]
  - DRUG TOXICITY [None]
  - HEPATIC CONGESTION [None]
  - HILAR LYMPHADENOPATHY [None]
  - LIVIDITY [None]
  - LOSS OF CONSCIOUSNESS [None]
  - PERICARDIAL EFFUSION [None]
  - PLEURAL EFFUSION [None]
  - PNEUMONIA [None]
  - SPLENOMEGALY [None]
  - UPPER RESPIRATORY TRACT INFECTION [None]
  - VENTRICULAR HYPERTROPHY [None]
